FAERS Safety Report 17529789 (Version 2)
Quarter: 2020Q1

REPORT INFORMATION
  Report Type: Report from Study
  Country: None (occurrence: CH)
  Receive Date: 20200311
  Receipt Date: 20200325
  Transmission Date: 20200409
  Serious: Yes (Hospitalization, Other)
  Sender: FDA-Public Use
  Company Number: CH-ABBVIE-20K-151-3310417-00

PATIENT
  Age: 73 Year
  Sex: Male

DRUGS (7)
  1. DUODOPA [Suspect]
     Active Substance: CARBIDOPA\LEVODOPA
     Dosage: MD 6ML, CONTINUOUS DOSE-DAY 3.7ML/H, ED 1ML??FREQUENCY TEXT -16H THERAPY
     Route: 050
     Dates: start: 20190506, end: 20190801
  2. DUODOPA [Suspect]
     Active Substance: CARBIDOPA\LEVODOPA
     Dosage: MD 6ML, CONTINUOUS DOSE-DAY 3.8ML/H, EXTRA DOSE 1ML?FREQUENCY TEXT -16H THERAPY
     Route: 050
     Dates: start: 20190801, end: 202003
  3. DUODOPA [Suspect]
     Active Substance: CARBIDOPA\LEVODOPA
     Dosage: MD 6ML, CONTINUOUS DOSE-DAY 5ML/H, EXTRA DOSE 1ML?FREQUENCY TEXT -16H THERAPY
     Route: 050
     Dates: start: 202003, end: 20200305
  4. DUODOPA [Suspect]
     Active Substance: CARBIDOPA\LEVODOPA
     Dosage: MD MISSING, CONTINUOUS DOSE-DAY 5ML/H, EXTRA DOSE 1ML?FREQUENCY TEXT -16H THERAPY
     Route: 050
     Dates: start: 20200305, end: 20200305
  5. DUODOPA [Suspect]
     Active Substance: CARBIDOPA\LEVODOPA
     Indication: PARKINSON^S DISEASE
     Route: 050
     Dates: start: 20190429, end: 20190506
  6. DUODOPA [Suspect]
     Active Substance: CARBIDOPA\LEVODOPA
     Dosage: MD 6ML, CD-DAY 5ML/H, EXTRA DOSE 1ML?FREQUENCY TEXT -16H THERAPY?1 CASSETTE/24 H
     Route: 050
     Dates: start: 20200306
  7. DUODOPA [Suspect]
     Active Substance: CARBIDOPA\LEVODOPA
     Dosage: MD 6ML, CONTINUOUS DOSE-DAY 3.9ML/H, EXTRA DOSE 1ML?FREQUENCY TEXT -16H THERAPY
     Route: 050
     Dates: start: 202003, end: 202003

REACTIONS (5)
  - Yellow skin [Recovered/Resolved]
  - General physical health deterioration [Recovered/Resolved]
  - Somnolence [Recovered/Resolved]
  - Pneumonia [Recovered/Resolved]
  - Hepatitis B [Unknown]

NARRATIVE: CASE EVENT DATE: 20200225
